FAERS Safety Report 15811931 (Version 1)
Quarter: 2019Q1

REPORT INFORMATION
  Report Type: Spontaneous
  Country: TW (occurrence: TW)
  Receive Date: 20190111
  Receipt Date: 20190111
  Transmission Date: 20190417
  Serious: Yes (Hospitalization, Other)
  Sender: FDA-Public Use
  Company Number: TW-IPCA LABORATORIES LIMITED-IPC-2019-TW-000007

PATIENT

DRUGS (1)
  1. PROPRANOLOL HYDROCHLORIDE 10 MG TABLETS, USP [Suspect]
     Active Substance: PROPRANOLOL HYDROCHLORIDE
     Indication: PRODUCT USED FOR UNKNOWN INDICATION
     Dosage: 504 DF, SINGLE
     Route: 048

REACTIONS (6)
  - Bradycardia [Unknown]
  - Seizure [Recovered/Resolved]
  - Pulseless electrical activity [Unknown]
  - Cardiotoxicity [Unknown]
  - Circulatory collapse [Unknown]
  - Overdose [Unknown]
